FAERS Safety Report 5007299-1 (Version None)
Quarter: 2006Q2

REPORT INFORMATION
  Report Type: 
  Country: None (occurrence: None)
  Receive Date: 20060519
  Receipt Date: 20060519
  Transmission Date: 20061013
  Serious: Yes (Hospitalization)
  Sender: FDA-Public Use
  Company Number: None

PATIENT
  Age: 70 Year
  Sex: Female
  Weight: 57.6068 kg

DRUGS (1)
  1. ALBUTEROL [Suspect]
     Indication: CHRONIC OBSTRUCTIVE PULMONARY DISEASE
     Dosage: 1 VIAL Q 4 H VIA NEB
     Dates: start: 20060228, end: 20060417

REACTIONS (4)
  - DYSPNOEA [None]
  - PALPITATIONS [None]
  - TACHYCARDIA [None]
  - TREMOR [None]
